FAERS Safety Report 5254589-3 (Version None)
Quarter: 2007Q1

REPORT INFORMATION
  Report Type: 
  Country: None (occurrence: None)
  Receive Date: 20070302
  Receipt Date: 20070220
  Transmission Date: 20070707
  Serious: Yes (Other)
  Sender: FDA-Public Use
  Company Number: US-PFIZER INC-2007013957

PATIENT
  Sex: Female
  Weight: 113.4 kg

DRUGS (14)
  1. ZYVOX [Suspect]
     Indication: STAPHYLOCOCCAL INFECTION
     Route: 048
  2. LISINOPRIL [Concomitant]
  3. LIPITOR [Concomitant]
  4. TOPROL-XL [Concomitant]
  5. ALLOPURINOL [Concomitant]
  6. LASIX [Concomitant]
  7. LEVOFLOXACIN [Concomitant]
  8. CEFUROXIME [Concomitant]
  9. ALBUTEROL [Concomitant]
  10. SPIRIVA ^PFIZER^ [Concomitant]
  11. NORTRIPTYLINE HCL [Concomitant]
  12. FLUCONAZOLE [Concomitant]
  13. CELEBREX [Concomitant]
  14. ATIVAN [Concomitant]

REACTIONS (9)
  - BLOOD CHLORIDE ABNORMAL [None]
  - BLOOD CREATININE ABNORMAL [None]
  - BLOOD ELECTROLYTES ABNORMAL [None]
  - BLOOD POTASSIUM INCREASED [None]
  - BLOOD UREA ABNORMAL [None]
  - CHROMATOPSIA [None]
  - DIARRHOEA [None]
  - EYE HAEMORRHAGE [None]
  - PCO2 ABNORMAL [None]
